FAERS Safety Report 8031884-6 (Version None)
Quarter: 2012Q1

REPORT INFORMATION
  Report Type: 
  Country: None (occurrence: None)
  Receive Date: 20120109
  Receipt Date: 20111228
  Transmission Date: 20120608
  Serious: Yes (Other)
  Sender: FDA-Public Use
  Company Number: US-WATSON-2011-22494

PATIENT
  Sex: Female

DRUGS (2)
  1. DARVOCET [Suspect]
     Indication: PAIN MANAGEMENT
     Dosage: UNK
     Route: 048
  2. PROPOXYPHENE HCL AND ACETAMINOPHEN [Suspect]
     Indication: PAIN MANAGEMENT
     Dosage: UNK
     Route: 048
     Dates: start: 20091211, end: 20091231

REACTIONS (1)
  - SINUS BRADYCARDIA [None]
